FAERS Safety Report 7573114-5 (Version None)
Quarter: 2011Q2

REPORT INFORMATION
  Report Type: 
  Country: None (occurrence: None)
  Receive Date: 20110627
  Receipt Date: 20110621
  Transmission Date: 20111010
  Serious: Yes (Hospitalization, Disabling)
  Sender: FDA-Public Use
  Company Number: JP-BRISTOL-MYERS SQUIBB COMPANY-15417140

PATIENT
  Age: 54 Year
  Sex: Male

DRUGS (8)
  1. METHYCOBAL [Concomitant]
     Route: 048
  2. PREDNISOLONE [Concomitant]
     Indication: ACUTE LYMPHOCYTIC LEUKAEMIA
     Route: 048
  3. SPRYCEL [Suspect]
     Indication: ACUTE LYMPHOCYTIC LEUKAEMIA
     Dosage: 70MG BID:07APR10-09MAY10 100MG:26JUN10-30JUL10.
     Route: 048
     Dates: start: 20100407, end: 20100730
  4. HUMULIN R [Concomitant]
     Dosage: 1DF=30-50 UNIT
     Route: 058
     Dates: start: 20100511
  5. ACTOS [Concomitant]
     Route: 048
  6. LASIX [Concomitant]
     Indication: OEDEMA
     Route: 048
  7. SULFAMETHOXAZOLE [Concomitant]
     Indication: PROPHYLAXIS
     Route: 048
  8. FAMOTIDINE [Concomitant]
     Indication: PROPHYLAXIS
     Route: 048

REACTIONS (1)
  - ALVEOLAR PROTEINOSIS [None]
